FAERS Safety Report 5719634-7 (Version None)
Quarter: 2008Q2

REPORT INFORMATION
  Report Type: 
  Country: None (occurrence: None)
  Receive Date: 20080423
  Receipt Date: 20070327
  Transmission Date: 20081010
  Serious: Yes (Other)
  Sender: FDA-Public Use
  Company Number: 238987

PATIENT
  Age: 61 Year
  Sex: Female
  Weight: 77.1 kg

DRUGS (4)
  1. AVASTIN [Suspect]
     Indication: RECTAL CANCER
     Dosage: 430 MG, Q2W, INTRAVENOUS
     Route: 042
     Dates: start: 20070219
  2. OXALIPLATIN [Concomitant]
  3. FLUOROURACIL [Concomitant]
  4. LEUCOVORIN CALCIUM [Concomitant]

REACTIONS (1)
  - PULMONARY EMBOLISM [None]
